FAERS Safety Report 8116607-4 (Version None)
Quarter: 2012Q1

REPORT INFORMATION
  Report Type: 
  Country: None (occurrence: None)
  Receive Date: 20120206
  Receipt Date: 20120124
  Transmission Date: 20120608
  Serious: Yes (Hospitalization)
  Sender: FDA-Public Use
  Company Number: PHHY2012FR006557

PATIENT
  Sex: Male

DRUGS (9)
  1. OMEXEL [Concomitant]
     Dosage: UNK
  2. ACEBUTOLOL [Concomitant]
     Dosage: UNK
  3. IKOREL [Concomitant]
     Dosage: UNK
  4. GLEEVEC [Suspect]
     Dosage: 400 MG, DAILY
     Dates: start: 20090620
  5. ASPIRIN [Concomitant]
     Dosage: UNK
  6. GLEEVEC [Suspect]
     Dosage: 300 MG
     Dates: start: 20110501
  7. AVODART [Concomitant]
     Dosage: UNK
  8. EZETIMIBE [Concomitant]
     Dosage: UNK
  9. OMACOR [Concomitant]
     Dosage: UNK

REACTIONS (3)
  - NEOPLASM MALIGNANT [None]
  - PROSTATE CANCER [None]
  - SKIN DISORDER [None]
